FAERS Safety Report 8282566-7 (Version None)
Quarter: 2012Q2

REPORT INFORMATION
  Report Type: 
  Country: None (occurrence: None)
  Receive Date: 20120413
  Receipt Date: 20120403
  Transmission Date: 20120825
  Serious: Yes (Hospitalization)
  Sender: FDA-Public Use
  Company Number: US-VERTEX PHARMACEUTICALS INC.-AE-2012-004415

PATIENT
  Sex: Male
  Weight: 68.1 kg

DRUGS (10)
  1. TRAMADOL HCL [Concomitant]
  2. ATOVAQUONE [Concomitant]
  3. INCIVEK [Suspect]
     Indication: HEPATITIS C
     Route: 048
     Dates: start: 20111101, end: 20120315
  4. RIBAVIRIN [Concomitant]
     Indication: HEPATITIS C
     Dates: start: 20111119, end: 20120315
  5. LIDOCAINE [Concomitant]
  6. AMITRIPTLINE [Concomitant]
  7. ZOLPEDEM [Concomitant]
  8. PANTOPRAZOLE [Concomitant]
  9. LEVOTHYROXINE SODIUM [Concomitant]
  10. PEGASYS [Concomitant]
     Indication: HEPATITIS C
     Dates: start: 20111119, end: 20120315

REACTIONS (7)
  - PYREXIA [None]
  - OFF LABEL USE [None]
  - INSOMNIA [None]
  - ANAEMIA [None]
  - SEPSIS [None]
  - SYSTEMIC INFLAMMATORY RESPONSE SYNDROME [None]
  - DRUG RASH WITH EOSINOPHILIA AND SYSTEMIC SYMPTOMS [None]
